FAERS Safety Report 8061999-8 (Version None)
Quarter: 2012Q1

REPORT INFORMATION
  Report Type: 
  Country: None (occurrence: None)
  Receive Date: 20120123
  Receipt Date: 20120111
  Transmission Date: 20120608
  Serious: Yes (Hospitalization)
  Sender: FDA-Public Use
  Company Number: US-BAYER-2011-036223

PATIENT
  Age: 24 Year
  Sex: Female
  Weight: 112 kg

DRUGS (8)
  1. ANALGESICS [Concomitant]
     Indication: PAIN
  2. ASPIRIN [Concomitant]
  3. PREDNISONE TAB [Concomitant]
  4. YAZ [Suspect]
     Indication: CONTRACEPTION
     Dosage: UNK
     Dates: start: 20070501, end: 20070727
  5. PENICILLIN VK [Concomitant]
     Indication: ANTIBIOTIC THERAPY
     Dosage: UNK
     Route: 048
     Dates: start: 20070501
  6. IBUPROFEN [Concomitant]
     Indication: PAIN
     Dosage: UNK UNK, PRN (AS NEEDED)
     Route: 048
  7. YAZ [Suspect]
     Indication: POLYCYSTIC OVARIES
  8. CIPROFLOXACIN [Concomitant]
     Indication: ANTIBIOTIC THERAPY
     Dosage: UNK
     Route: 048
     Dates: start: 20070501

REACTIONS (8)
  - GENERAL PHYSICAL HEALTH DETERIORATION [None]
  - DEEP VEIN THROMBOSIS [None]
  - EMOTIONAL DISTRESS [None]
  - ANXIETY [None]
  - PULMONARY EMBOLISM [None]
  - INJURY [None]
  - PAIN IN EXTREMITY [None]
  - PAIN [None]
